FAERS Safety Report 7760375-2 (Version None)
Quarter: 2011Q3

REPORT INFORMATION
  Report Type: 
  Country: None (occurrence: None)
  Receive Date: 20110919
  Receipt Date: 20110913
  Transmission Date: 20111222
  Serious: Yes (Life-Threatening, Hospitalization)
  Sender: FDA-Public Use
  Company Number: PHHO2011AU15592

PATIENT
  Sex: Male
  Weight: 61.2 kg

DRUGS (6)
  1. STEROIDS NOS [Concomitant]
  2. SIMULECT [Suspect]
     Indication: RENAL TRANSPLANT
     Dosage: UNK
  3. MYFORTIC [Suspect]
     Indication: RENAL TRANSPLANT
     Dosage: UNK
  4. MYCOPHENOLATE MOFETIL (CELLCEPT) [Suspect]
     Indication: RENAL TRANSPLANT
     Dosage: UNK
  5. PROGRAF [Suspect]
     Indication: RENAL TRANSPLANT
     Dosage: UNK
  6. IMMUNOGLOBULINS [Concomitant]
     Dosage: UNK
     Route: 042

REACTIONS (7)
  - PANCYTOPENIA [None]
  - HYPOTENSION [None]
  - TOXICITY TO VARIOUS AGENTS [None]
  - ANASTOMOTIC HAEMORRHAGE [None]
  - RIGHT VENTRICULAR FAILURE [None]
  - CARDIAC ARREST [None]
  - DISSEMINATED INTRAVASCULAR COAGULATION [None]
